FAERS Safety Report 14145691 (Version 1)
Quarter: 2017Q4

REPORT INFORMATION
  Report Type: Spontaneous
  Country: US (occurrence: None)
  Receive Date: 20171031
  Receipt Date: 20171031
  Transmission Date: 20180321
  Serious: Yes (Life-Threatening, Disabling)
  Sender: FDA-Public Use
  Company Number: None

PATIENT
  Age: 29 Year
  Sex: Male
  Weight: 59 kg

DRUGS (5)
  1. DIVA OD (DIVALPROEX SODIUM) [Suspect]
     Active Substance: DIVALPROEX SODIUM
     Route: 048
     Dates: start: 20080820, end: 20140217
  2. FLUOXAMINE [Suspect]
     Active Substance: FLUVOXAMINE
     Route: 048
     Dates: start: 20080820, end: 20140217
  3. SOLTUS [Suspect]
     Active Substance: AMISULPRIDE
     Route: 048
     Dates: start: 20080820, end: 20140217
  4. RISDON (RISPERIDONE) [Suspect]
     Active Substance: RISPERIDONE
     Route: 048
     Dates: start: 20080820, end: 20140217
  5. SERTALINE [Suspect]
     Active Substance: SERTRALINE HYDROCHLORIDE
     Route: 048
     Dates: start: 20080820, end: 20140217

REACTIONS (1)
  - Sexual dysfunction [None]

NARRATIVE: CASE EVENT DATE: 20100606
